FAERS Safety Report 20125119 (Version 1)
Quarter: 2021Q4

REPORT INFORMATION
  Report Type: Spontaneous
  Country: KR (occurrence: None)
  Receive Date: 20211129
  Receipt Date: 20211129
  Transmission Date: 20220303
  Serious: Yes (Other)
  Sender: FDA-Public Use
  Company Number: 2021A832630

PATIENT
  Age: 70 Year
  Sex: Male

DRUGS (5)
  1. OLAPARIB [Suspect]
     Active Substance: OLAPARIB
     Route: 048
     Dates: start: 20170608, end: 20181104
  2. OLAPARIB [Suspect]
     Active Substance: OLAPARIB
     Route: 048
  3. BICALUTAMIDE [Concomitant]
     Active Substance: BICALUTAMIDE
     Dates: start: 20140915, end: 20150501
  4. ACIS TRIAL [Concomitant]
     Dates: start: 20150720, end: 20160620
  5. DOCETAXEL [Concomitant]
     Active Substance: DOCETAXEL
     Dates: start: 20170608, end: 20181104

REACTIONS (2)
  - Malignant neoplasm progression [Unknown]
  - Anaemia [Unknown]
